FAERS Safety Report 6708168 (Version 12)
Quarter: 2012Q4

REPORT INFORMATION
  Report Type: 
  Country: US (occurrence: US)
  Receive Date: 20080724
  Receipt Date: 20120906
  Transmission Date: 20130627
  Serious: Yes (Death, Hospitalization, Other)
  Sender: FDA-Public Use
  Company Number: PHEH2008US06284

PATIENT
  Sex: Female

DRUGS (30)
  1. ZOMETA [Suspect]
  2. ATENOLOL [Concomitant]
  3. POTASSIUM CHLORIDE [Concomitant]
  4. LISINOPRIL [Concomitant]
  5. HYDROCHLOROTHIAZIDE [Concomitant]
  6. OXYCONTIN [Concomitant]
  7. ALLOPURINOL [Concomitant]
  8. SYNTHROID [Concomitant]
  9. VIOXX [Concomitant]
     Dosage: 25 mg,   daily
  10. ACUPRIL [Concomitant]
     Dosage: 20 mg, QD
  11. PROTONIX [Concomitant]
     Dosage: 40 mg, QD
     Dates: start: 20080626
  12. PRIMIDONE [Concomitant]
     Dosage: 50 mg, QHS
     Route: 048
     Dates: start: 20080521
  13. MIRALAX [Concomitant]
     Dosage: 1 DF, QD, PRN
     Route: 048
     Dates: start: 20071206, end: 20080826
  14. PHENERGAN [Concomitant]
  15. AROMASIN [Concomitant]
     Dosage: 25 mg, QD
     Route: 048
  16. PERCOCET [Concomitant]
  17. ATIVAN [Concomitant]
     Dosage: 0.5 mg,
     Dates: start: 20070403
  18. TRAZODONE [Concomitant]
     Dosage: 50 mg,
     Dates: start: 20060814, end: 20070307
  19. ULTRAM [Concomitant]
     Dosage: 50 mg,
     Dates: start: 20060424
  20. ZOFRAN [Concomitant]
  21. NEXIUM [Concomitant]
  22. DEXAMETHASONE [Concomitant]
     Dosage: 4 mg,
     Route: 048
  23. HYDROCHLOROTHIAZID [Concomitant]
     Dosage: 25 mg, QD
     Route: 048
  24. FEMARA [Concomitant]
     Dosage: 2.5 mg, QD
  25. TENORMIN [Concomitant]
     Dosage: 50 mg,
  26. MYSOLINE ^ASTRA^ [Concomitant]
     Dosage: 50 mg,
  27. ZOLOFT (SERTRALINE HYDROCHLORIDE) [Concomitant]
     Dosage: 50 mg,
  28. MEGACE [Concomitant]
     Dosage: 5 ml, PRN
     Route: 048
  29. ROXANOL [Concomitant]
     Dosage: 5 mg,
  30. ATROPINE [Concomitant]

REACTIONS (59)
  - Neoplasm progression [Fatal]
  - Malignant neoplasm progression [Fatal]
  - Osteonecrosis of jaw [Recovering/Resolving]
  - Osteomyelitis [Unknown]
  - Infection [Unknown]
  - Scar [Unknown]
  - Injury [Unknown]
  - Anxiety [Unknown]
  - Exposed bone in jaw [Unknown]
  - Inflammation [Unknown]
  - Pain in jaw [Unknown]
  - Swelling [Unknown]
  - Hypoaesthesia [Unknown]
  - Haemorrhage [Unknown]
  - Alveolar osteitis [Unknown]
  - Excessive granulation tissue [Unknown]
  - Pseudoepitheliomatous hyperplasia [Unknown]
  - Giant cell epulis [Unknown]
  - Impaired healing [Unknown]
  - Osteoarthritis [Unknown]
  - Cholelithiasis [Unknown]
  - Nephrolithiasis [Unknown]
  - Arthropathy [Unknown]
  - Asthenia [Unknown]
  - Abdominal pain [Unknown]
  - Vomiting [Unknown]
  - Diarrhoea [Unknown]
  - Pancreatitis [Unknown]
  - Cholecystitis [Unknown]
  - Tremor [Unknown]
  - Renal cyst [Unknown]
  - Hepatic cancer [Unknown]
  - Constipation [Unknown]
  - Ascites [Unknown]
  - Hepatic cirrhosis [Unknown]
  - Umbilical hernia [Unknown]
  - Atelectasis [Unknown]
  - Small intestinal obstruction [Unknown]
  - Bone lesion [Fatal]
  - Metastases to bone [Fatal]
  - Pulmonary mass [Unknown]
  - Bile duct obstruction [Unknown]
  - Haematemesis [Unknown]
  - Oesophagitis [Unknown]
  - Musculoskeletal pain [Unknown]
  - Osteosclerosis [Unknown]
  - Tooth infection [Unknown]
  - Intervertebral disc degeneration [Unknown]
  - Insomnia [Unknown]
  - Gout [Unknown]
  - Cardiomegaly [Unknown]
  - Aortic arteriosclerosis [Unknown]
  - Dizziness [Unknown]
  - Skin cancer [Unknown]
  - Subcutaneous emphysema [Unknown]
  - Venous angioma of brain [Unknown]
  - Hypovolaemia [Unknown]
  - Actinic keratosis [Unknown]
  - Seborrhoeic keratosis [Unknown]
